FAERS Safety Report 24206137 (Version 2)
Quarter: 2024Q3

REPORT INFORMATION
  Report Type: Spontaneous
  Country: PT (occurrence: PT)
  Receive Date: 20240813
  Receipt Date: 20240816
  Transmission Date: 20241017
  Serious: Yes (Other)
  Sender: ROCHE
  Company Number: None

PATIENT
  Age: 48 Year
  Sex: Female
  Weight: 57 kg

DRUGS (10)
  1. KADCYLA [Suspect]
     Active Substance: ADO-TRASTUZUMAB EMTANSINE
     Indication: HER2 positive breast cancer
     Dosage: C5
     Route: 042
     Dates: start: 20230921, end: 20231123
  2. KADCYLA [Suspect]
     Active Substance: ADO-TRASTUZUMAB EMTANSINE
     Dosage: C8
     Route: 042
     Dates: start: 20240220, end: 20240220
  3. KADCYLA [Suspect]
     Active Substance: ADO-TRASTUZUMAB EMTANSINE
     Route: 042
     Dates: start: 20240423, end: 20240423
  4. TRAZIMERA [Suspect]
     Active Substance: TRASTUZUMAB-QYYP
     Indication: HER2 positive breast cancer
     Dosage: 3/3 SEMANAS; C6 E C7
     Route: 042
     Dates: end: 20240403
  5. TRAZIMERA [Suspect]
     Active Substance: TRASTUZUMAB-QYYP
     Dosage: C9
     Route: 042
     Dates: start: 20240515, end: 20240515
  6. EXEMESTANE [Concomitant]
     Active Substance: EXEMESTANE
     Dosage: 1X/DIA PO
     Route: 048
  7. OLANZAPINE [Concomitant]
     Active Substance: OLANZAPINE
     Route: 048
  8. ZOLEDRONIC ACID [Concomitant]
     Active Substance: ZOLEDRONIC ACID
     Route: 042
  9. GOSERELIN [Concomitant]
     Active Substance: GOSERELIN
     Route: 058
  10. EXEMESTANE [Concomitant]
     Active Substance: EXEMESTANE

REACTIONS (1)
  - Non-alcoholic steatohepatitis [Recovering/Resolving]

NARRATIVE: CASE EVENT DATE: 20231219
